FAERS Safety Report 20255214 (Version 3)
Quarter: 2022Q1

REPORT INFORMATION
  Report Type: Spontaneous
  Country: US (occurrence: None)
  Receive Date: 20211230
  Receipt Date: 20220228
  Transmission Date: 20220423
  Serious: No
  Sender: FDA-Public Use
  Company Number: 2021A872434

PATIENT
  Age: 26141 Day
  Sex: Male
  Weight: 138.3 kg

DRUGS (1)
  1. BYDUREON BCISE [Suspect]
     Active Substance: EXENATIDE
     Indication: Type 2 diabetes mellitus
     Route: 058
     Dates: start: 2019

REACTIONS (4)
  - Injection site haemorrhage [Recovered/Resolved]
  - Incorrect dose administered [Recovered/Resolved]
  - Device leakage [Unknown]
  - Needle issue [Unknown]

NARRATIVE: CASE EVENT DATE: 20211213
